FAERS Safety Report 24229509 (Version 4)
Quarter: 2024Q4

REPORT INFORMATION
  Report Type: Spontaneous
  Country: AU (occurrence: AU)
  Receive Date: 20240820
  Receipt Date: 20241202
  Transmission Date: 20250115
  Serious: Yes (Hospitalization, Other)
  Sender: MYLAN
  Company Number: AU-MYLANLABS-2024M1074812

PATIENT
  Age: 29 Year
  Sex: Male
  Weight: 79 kg

DRUGS (10)
  1. CLOZARIL [Suspect]
     Active Substance: CLOZAPINE
     Indication: Schizophrenia
     Dosage: UNK
     Route: 048
     Dates: start: 20240712, end: 20240801
  2. CLOZARIL [Suspect]
     Active Substance: CLOZAPINE
     Dosage: 12.5 MILLIGRAM
     Route: 048
     Dates: start: 20240717
  3. CLOZARIL [Suspect]
     Active Substance: CLOZAPINE
     Dosage: 200 MILLIGRAM, PM (UPTITRATED; NOCTE)
     Route: 048
     Dates: start: 20240801
  4. CLOZARIL [Suspect]
     Active Substance: CLOZAPINE
     Dosage: UNK
     Route: 048
     Dates: start: 20241120
  5. ARIPIPRAZOLE [Suspect]
     Active Substance: ARIPIPRAZOLE
     Indication: Product used for unknown indication
     Dosage: UNK (DEPOT 400 MG)
     Route: 065
     Dates: start: 20240717
  6. BUPRENORPHINE [Suspect]
     Active Substance: BUPRENORPHINE
     Indication: Product used for unknown indication
     Dosage: UNK (MONTHLY)
     Route: 058
     Dates: start: 20240722
  7. OLANZAPINE [Concomitant]
     Active Substance: OLANZAPINE
     Dosage: UNK
     Route: 065
  8. HALOPERIDOL [Concomitant]
     Active Substance: HALOPERIDOL
     Dosage: 2 MILLIGRAM, BID (BD)
     Route: 065
  9. ABILIFY [Concomitant]
     Active Substance: ARIPIPRAZOLE
     Dosage: UNK (ABILIFY DEPOT)
     Route: 065
  10. BUPRENORPHINE [Concomitant]
     Active Substance: BUPRENORPHINE
     Dosage: UNK
     Route: 065

REACTIONS (19)
  - Myocarditis [Unknown]
  - Mental impairment [Unknown]
  - Troponin C increased [Recovered/Resolved]
  - Chest discomfort [Unknown]
  - Blood sodium increased [Recovered/Resolved]
  - Antipsychotic drug level increased [Unknown]
  - Cough [Unknown]
  - Delusion [Unknown]
  - Anion gap decreased [Recovered/Resolved]
  - Blood albumin decreased [Recovered/Resolved]
  - Blood osmolarity increased [Recovering/Resolving]
  - Blood phosphorus decreased [Recovered/Resolved]
  - Bone disorder [Unknown]
  - C-reactive protein increased [Recovering/Resolving]
  - Protein urine present [Unknown]
  - Troponin increased [Unknown]
  - Sinus tachycardia [Unknown]
  - Fatigue [Unknown]
  - Mean cell haemoglobin decreased [Recovered/Resolved]

NARRATIVE: CASE EVENT DATE: 20240716
